FAERS Safety Report 15536378 (Version 1)
Quarter: 2018Q4

REPORT INFORMATION
  Report Type: Spontaneous
  Country: US (occurrence: US)
  Receive Date: 20181016
  Receipt Date: 20181016
  Transmission Date: 20190205
  Serious: No
  Sender: FDA-Public Use
  Company Number: None

PATIENT
  Age: 46 Year
  Sex: Female

DRUGS (1)
  1. IBRANCE [Suspect]
     Active Substance: PALBOCICLIB
     Indication: BREAST CANCER
     Dates: start: 201712

REACTIONS (4)
  - Herpes zoster [None]
  - Fungal infection [None]
  - Ear infection [None]
  - Sinusitis [None]

NARRATIVE: CASE EVENT DATE: 20181013
